FAERS Safety Report 12661164 (Version 2)
Quarter: 2016Q3

REPORT INFORMATION
  Report Type: Spontaneous
  Country: US (occurrence: US)
  Receive Date: 20160817
  Receipt Date: 20160901
  Transmission Date: 20161109
  Serious: No
  Sender: FDA-Public Use
  Company Number: US-RELYPSA-RLY2016000686

PATIENT
  Age: 86 Year
  Sex: Female

DRUGS (17)
  1. BENICAR [Concomitant]
     Active Substance: OLMESARTAN MEDOXOMIL
  2. CLONIDINE HCL [Concomitant]
     Active Substance: CLONIDINE HYDROCHLORIDE
  3. PRAVACHOL [Concomitant]
     Active Substance: PRAVASTATIN SODIUM
  4. BIOTIN [Concomitant]
     Active Substance: BIOTIN
  5. LEVEMIR [Concomitant]
     Active Substance: INSULIN DETEMIR
  6. RESTASIS [Concomitant]
     Active Substance: CYCLOSPORINE
  7. ASPIRIN. [Concomitant]
     Active Substance: ASPIRIN
  8. PROAIR HFA [Concomitant]
     Active Substance: ALBUTEROL SULFATE
  9. SYNTHROID [Concomitant]
     Active Substance: LEVOTHYROXINE SODIUM
  10. INTEGRA [Suspect]
     Active Substance: DIETARY SUPPLEMENT
     Dosage: UNK
     Dates: start: 201605
  11. PLAVIX [Concomitant]
     Active Substance: CLOPIDOGREL BISULFATE
  12. VICTOZA [Concomitant]
     Active Substance: LIRAGLUTIDE
  13. INTEGRA [Suspect]
     Active Substance: DIETARY SUPPLEMENT
     Indication: NEPHROGENIC ANAEMIA
     Dosage: UNK
     Dates: start: 20160506, end: 20160509
  14. DOXYCYCLINE HYCLATE. [Concomitant]
     Active Substance: DOXYCYCLINE HYCLATE
  15. VELTASSA [Suspect]
     Active Substance: PATIROMER
     Indication: HYPERKALAEMIA
     Dosage: 8.4 G, QD (AT NOON)
     Route: 048
     Dates: start: 20160425
  16. COREG [Concomitant]
     Active Substance: CARVEDILOL
  17. FUROSEMIDE. [Concomitant]
     Active Substance: FUROSEMIDE

REACTIONS (1)
  - Faeces discoloured [Unknown]

NARRATIVE: CASE EVENT DATE: 20160509
